FAERS Safety Report 17331226 (Version 3)
Quarter: 2020Q1

REPORT INFORMATION
  Report Type: Spontaneous
  Country: FR (occurrence: FR)
  Receive Date: 20200128
  Receipt Date: 20200205
  Transmission Date: 20200409
  Serious: Yes (Death, Other)
  Sender: FDA-Public Use
  Company Number: FR-BIOVITRUM-2020FR0347

PATIENT
  Sex: Female

DRUGS (1)
  1. KINERET [Suspect]
     Active Substance: ANAKINRA
     Indication: STILL^S DISEASE
     Dosage: 25 MG/DAY
     Route: 048
     Dates: start: 200906, end: 20091112

REACTIONS (3)
  - Cardiomyopathy [Fatal]
  - Cardio-respiratory arrest [Fatal]
  - Serositis [Fatal]
